FAERS Safety Report 8557323-4 (Version None)
Quarter: 2012Q3

REPORT INFORMATION
  Report Type: 
  Country: None (occurrence: None)
  Receive Date: 20120801
  Receipt Date: 20080829
  Transmission Date: 20120928
  Serious: Yes (Other)
  Sender: FDA-Public Use
  Company Number: US-ROCHE-1094959

PATIENT
  Sex: Male

DRUGS (6)
  1. XOLAIR [Suspect]
     Indication: RHINITIS SEASONAL
  2. SINGULAIR [Concomitant]
     Route: 065
  3. PROAIR HFA [Concomitant]
     Route: 065
  4. FORADIL [Concomitant]
     Route: 065
  5. XOLAIR [Suspect]
     Indication: ASTHMA
     Route: 065
  6. ASMANEX TWISTHALER [Concomitant]
     Dosage: TWISTHALER
     Route: 065

REACTIONS (3)
  - WHEEZING [None]
  - CHEST DISCOMFORT [None]
  - SLEEP DISORDER [None]
